FAERS Safety Report 8956995 (Version 2)
Quarter: 2014Q1

REPORT INFORMATION
  Report Type: Report from Study
  Country: FR (occurrence: FR)
  Receive Date: 20121210
  Receipt Date: 20140327
  Transmission Date: 20141002
  Serious: Yes (Death, Other)
  Sender: FDA-Public Use
  Company Number: FR-ROCHE-1165732

PATIENT
  Sex: 0

DRUGS (2)
  1. RITUXIMAB [Suspect]
     Indication: TRANSPLANT REJECTION
     Dosage: 2 DOSES
     Route: 065
  2. IMMUNOGLOBULIN [Suspect]
     Indication: TRANSPLANT REJECTION
     Dosage: 1 G/KG
     Route: 042

REACTIONS (4)
  - Death [Fatal]
  - Neoplasm [Unknown]
  - Hepatocellular injury [Unknown]
  - Haemolytic anaemia [Unknown]
